FAERS Safety Report 18315515 (Version 3)
Quarter: 2020Q4

REPORT INFORMATION
  Report Type: Spontaneous
  Country: US (occurrence: US)
  Receive Date: 20200926
  Receipt Date: 20201112
  Transmission Date: 20210113
  Serious: Yes (Other)
  Sender: FDA-Public Use
  Company Number: US-SERVIER-S20009407

PATIENT

DRUGS (6)
  1. ONCASPAR [Suspect]
     Active Substance: PEGASPARGASE
     Dosage: 1725 IU, ONE DOSE
     Route: 042
     Dates: start: 20200623, end: 20200623
  2. TN UNSPECIFIED [Concomitant]
     Indication: ACUTE LYMPHOCYTIC LEUKAEMIA
     Dosage: 1.05 MG
     Route: 065
     Dates: start: 20200623, end: 20200623
  3. TN UNSPECIFIED [Concomitant]
     Indication: SEDATION
     Dosage: 80 MG, ONE DOSE
     Route: 042
     Dates: start: 20200623, end: 20200623
  4. TN UNSPECIFIED [Concomitant]
     Indication: PREMEDICATION
     Dosage: 18 MG, ONE DOSE
     Route: 042
     Dates: start: 20200623, end: 20200623
  5. TN UNSPECIFIED [Concomitant]
     Indication: ACUTE LYMPHOCYTIC LEUKAEMIA
     Dosage: 12 MG, ONE DOSE
     Route: 037
     Dates: start: 20200623, end: 20200623
  6. ONCASPAR [Suspect]
     Active Substance: PEGASPARGASE
     Indication: ACUTE LYMPHOCYTIC LEUKAEMIA
     Dosage: 1725 IU, ONE DOSE
     Route: 042
     Dates: start: 20200425, end: 20200425

REACTIONS (1)
  - Hypersensitivity [Recovered/Resolved]

NARRATIVE: CASE EVENT DATE: 20200623
